FAERS Safety Report 4386898-4 (Version None)
Quarter: 2004Q2

REPORT INFORMATION
  Report Type: 
  Country: None (occurrence: None)
  Receive Date: 20040628
  Receipt Date: 20040628
  Transmission Date: 20050107
  Serious: Yes (Other)
  Sender: FDA-Public Use
  Company Number: None

PATIENT
  Sex: Female
  Weight: 61.2356 kg

DRUGS (4)
  1. WELLBUTRIN XL [Suspect]
     Indication: DEPRESSION
     Dosage: 300 MG 1 PER DAY
     Dates: start: 20040605
  2. WELLBUTRIN XL [Suspect]
     Indication: PREMENSTRUAL SYNDROME
     Dosage: 300 MG 1 PER DAY
     Dates: start: 20040605
  3. WELLBUTRIN XL [Suspect]
     Indication: DEPRESSION
     Dosage: 300 MG 1 PER DAY
     Dates: start: 20040616
  4. WELLBUTRIN XL [Suspect]
     Indication: PREMENSTRUAL SYNDROME
     Dosage: 300 MG 1 PER DAY
     Dates: start: 20040616

REACTIONS (2)
  - DEPRESSION [None]
  - PHARMACEUTICAL PRODUCT COMPLAINT [None]
